FAERS Safety Report 12100016 (Version 1)
Quarter: 2016Q1

REPORT INFORMATION
  Report Type: Report from Study
  Country: CA (occurrence: CA)
  Receive Date: 20160222
  Receipt Date: 20160222
  Transmission Date: 20160526
  Serious: Yes (Life-Threatening, Hospitalization, Other)
  Sender: FDA-Public Use
  Company Number: CA-PFIZER INC-2016097385

PATIENT
  Age: 61 Year
  Sex: Male
  Weight: 98 kg

DRUGS (4)
  1. HUMIRA [Suspect]
     Active Substance: ADALIMUMAB
     Indication: PSORIASIS
     Dosage: 40.0 UNK, 1 EVERY 2 WEEKS
     Route: 058
  2. DILAUDID [Concomitant]
     Active Substance: HYDROMORPHONE HYDROCHLORIDE
     Dosage: UNK
  3. ZOLOFT [Suspect]
     Active Substance: SERTRALINE HYDROCHLORIDE
     Dosage: 150.0 MG, 1X/DAY
     Route: 048
  4. ZOLOFT [Suspect]
     Active Substance: SERTRALINE HYDROCHLORIDE
     Dosage: 100.0 MG, 1X/DAY
     Route: 048

REACTIONS (26)
  - Confusional state [Unknown]
  - Dyskinesia [Unknown]
  - Distractibility [Unknown]
  - Clostridium difficile colitis [Unknown]
  - Diplopia [Unknown]
  - Pulmonary mass [Unknown]
  - Serotonin syndrome [Unknown]
  - Balance disorder [Unknown]
  - Immune system disorder [Unknown]
  - Microangiopathy [Unknown]
  - Seizure [Unknown]
  - Agitation [Unknown]
  - Gastroenteritis viral [Unknown]
  - Headache [Unknown]
  - Photophobia [Unknown]
  - Meningitis [Unknown]
  - Viral infection [Unknown]
  - Hypotension [Unknown]
  - Blood potassium decreased [Unknown]
  - Cardiac murmur [Unknown]
  - Psoriasis [Unknown]
  - White blood cell count increased [Unknown]
  - Angiopathy [Unknown]
  - Respiratory distress [Unknown]
  - Muscle twitching [Unknown]
  - Hypoxia [Unknown]
